FAERS Safety Report 8862587 (Version 1)
Quarter: 2012Q4

REPORT INFORMATION
  Report Type: 
  Country: CN (occurrence: CN)
  Receive Date: 20121026
  Receipt Date: 20121026
  Transmission Date: 20130627
  Serious: Yes (Other)
  Sender: FDA-Public Use
  Company Number: CN-JNJFOC-20121012226

PATIENT

DRUGS (8)
  1. DOXORUBICIN [Suspect]
     Indication: MALIGNANT ASCITES
     Route: 033
  2. CISPLATIN [Suspect]
     Indication: MALIGNANT ASCITES
     Route: 033
  3. MITOMYCIN C [Suspect]
     Indication: MALIGNANT ASCITES
     Dosage: of body surface area
     Route: 033
  4. PETHIDINE HYDROCHLORIDE [Concomitant]
     Dosage: of body surface area
     Route: 030
  5. PROMETHAZINE HYDROCHLORIDE [Concomitant]
     Dosage: of body surface area
     Route: 030
  6. SALINE 0.9% [Concomitant]
     Dosage: 0.9%. 4500-6000ml
     Route: 042
  7. PROPOFOL [Concomitant]
     Indication: ANAESTHESIA
     Dosage: via continous venous pump with a dose 3-8 ml/hr
     Route: 042
  8. LIDOCAINE [Concomitant]
     Indication: ANAESTHESIA
     Dosage: 0.5%
     Route: 065

REACTIONS (3)
  - Ascites [Unknown]
  - Off label use [Unknown]
  - Incorrect route of drug administration [Unknown]
